FAERS Safety Report 8559941-6 (Version None)
Quarter: 2012Q3

REPORT INFORMATION
  Report Type: 
  Country: None (occurrence: None)
  Receive Date: 20120802
  Receipt Date: 20120725
  Transmission Date: 20120928
  Serious: Yes (Other)
  Sender: FDA-Public Use
  Company Number: US-BAYER-2012-070312

PATIENT
  Age: 29 Year
  Sex: Female

DRUGS (1)
  1. MIRENA [Suspect]
     Indication: CONTRACEPTION
     Dosage: 20 ?G/D, CONT
     Route: 015
     Dates: start: 20110214, end: 20120713

REACTIONS (5)
  - ABDOMINAL PAIN LOWER [None]
  - FUNGAL INFECTION [None]
  - VAGINAL ODOUR [None]
  - PRURITUS [None]
  - VAGINAL HAEMORRHAGE [None]
